FAERS Safety Report 22813711 (Version 4)
Quarter: 2023Q4

REPORT INFORMATION
  Report Type: Report from Study
  Country: BY (occurrence: BY)
  Receive Date: 20230811
  Receipt Date: 20231010
  Transmission Date: 20240110
  Serious: Yes (Death, Life-Threatening, Hospitalization)
  Sender: FDA-Public Use
  Company Number: BY-TG THERAPEUTICS INC.-TGT002915

PATIENT

DRUGS (1)
  1. UBLITUXIMAB [Suspect]
     Active Substance: UBLITUXIMAB
     Indication: Relapsing multiple sclerosis
     Dosage: 150 MILLIGRAM WEEK 1 DAY 1 AND 450 MG THEREAFTER
     Route: 042
     Dates: start: 20201007, end: 20230712

REACTIONS (3)
  - Pneumonia [Fatal]
  - Meningitis [Fatal]
  - Sepsis [Fatal]

NARRATIVE: CASE EVENT DATE: 20230728
